FAERS Safety Report 7628450-0 (Version None)
Quarter: 2011Q3

REPORT INFORMATION
  Report Type: 
  Country: None (occurrence: None)
  Receive Date: 20110711
  Receipt Date: 20110628
  Transmission Date: 20111222
  Serious: Yes (Hospitalization)
  Sender: FDA-Public Use
  Company Number: 2011028942

PATIENT
  Age: 68 Year
  Sex: Male
  Weight: 107.5025 kg

DRUGS (19)
  1. POTASSIUM (POTASSIUM) [Concomitant]
  2. DOCUSATE CALCIUM (DOCUSATE CALCIUM) [Concomitant]
  3. HIZENTRA [Suspect]
     Indication: STATUS ASTHMATICUS
     Dosage: SEE IMAGE
     Route: 058
     Dates: start: 20110316
  4. HIZENTRA [Suspect]
     Indication: ASTHMA
     Dosage: SEE IMAGE
     Route: 058
     Dates: start: 20110316
  5. HIZENTRA [Suspect]
     Indication: IMMUNODEFICIENCY COMMON VARIABLE
     Dosage: SEE IMAGE
     Route: 058
     Dates: start: 20110316
  6. SINGULAIR [Concomitant]
  7. WARFARIN SODIUM [Concomitant]
  8. SIMVASTATIN [Concomitant]
  9. BISOPROLOL FUMARATE [Concomitant]
  10. ALBUTEROL [Concomitant]
  11. NITROGLYCERIN [Concomitant]
  12. FINASTERIDE [Concomitant]
  13. LASIX [Concomitant]
  14. HIZENTRA [Suspect]
  15. SPIRIVA [Concomitant]
  16. LISINOPRIL [Concomitant]
  17. HIZENTRA [Suspect]
  18. SYMBICORT [Concomitant]
  19. ISOSORBIDE (ISOSORBIDE) [Concomitant]

REACTIONS (2)
  - INFECTION [None]
  - DRUG INEFFECTIVE [None]
